FAERS Safety Report 6417323-7 (Version None)
Quarter: 2009Q4

REPORT INFORMATION
  Report Type: 
  Country: None (occurrence: None)
  Receive Date: 20091028
  Receipt Date: 20091020
  Transmission Date: 20100525
  Serious: Yes (Hospitalization)
  Sender: FDA-Public Use
  Company Number: PHHY2009AU40534

PATIENT
  Sex: Female

DRUGS (1)
  1. EXELON [Suspect]
     Indication: DEMENTIA ALZHEIMER'S TYPE
     Dosage: 10, UNK
     Route: 061
     Dates: start: 20090611

REACTIONS (3)
  - APPLICATION SITE ERYTHEMA [None]
  - DEHYDRATION [None]
  - GASTROENTERITIS [None]
